FAERS Safety Report 16464812 (Version 5)
Quarter: 2022Q1

REPORT INFORMATION
  Report Type: Report from Study
  Country: EE (occurrence: EE)
  Receive Date: 20190621
  Receipt Date: 20220309
  Transmission Date: 20220423
  Serious: Yes (Other)
  Sender: FDA-Public Use
  Company Number: PHHY2019EE003690

PATIENT
  Age: 55 Year
  Sex: Female

DRUGS (10)
  1. COSENTYX [Suspect]
     Active Substance: SECUKINUMAB
     Indication: Psoriatic arthropathy
     Dosage: 150 MG
     Route: 058
     Dates: start: 20170130, end: 20170226
  2. COSENTYX [Suspect]
     Active Substance: SECUKINUMAB
     Dosage: 150 MG
     Route: 065
     Dates: start: 20170227, end: 20201106
  3. COSENTYX [Suspect]
     Active Substance: SECUKINUMAB
     Dosage: UNK
     Route: 065
     Dates: start: 20201107, end: 20201227
  4. COSENTYX [Suspect]
     Active Substance: SECUKINUMAB
     Dosage: UNK
     Route: 065
  5. COSENTYX [Suspect]
     Active Substance: SECUKINUMAB
     Dosage: 300 MG
     Route: 065
     Dates: start: 20201228
  6. COSENTYX [Suspect]
     Active Substance: SECUKINUMAB
     Dosage: UNK
     Route: 065
  7. NEBIVOLOL [Concomitant]
     Active Substance: NEBIVOLOL
     Indication: Hypertension
     Dosage: 5 MG/1X, UNK
     Route: 065
  8. ESCITALOPRAMUM [Concomitant]
     Indication: Depression
     Dosage: 10 MG/1X, UNK
     Route: 065
  9. ESCITALOPRAMUM [Concomitant]
     Indication: Anxiety
  10. VITAMIN D [Concomitant]
     Active Substance: VITAMIN D NOS
     Indication: Product used for unknown indication
     Dosage: UNK
     Route: 065

REACTIONS (18)
  - Psoriatic arthropathy [Recovered/Resolved]
  - Cataract [Recovering/Resolving]
  - Vision blurred [Unknown]
  - Upper respiratory tract infection [Recovered/Resolved]
  - Mycoplasma test positive [Unknown]
  - C-reactive protein increased [Unknown]
  - Chlamydia test positive [Unknown]
  - Cough [Recovered/Resolved]
  - Rhinorrhoea [Unknown]
  - Cholecystitis [Recovered/Resolved]
  - Respiratory tract infection [Recovered/Resolved]
  - Hyperuricaemia [Unknown]
  - Nasopharyngitis [Recovered/Resolved]
  - Synovial cyst [Recovered/Resolved]
  - Abdominal pain upper [Recovered/Resolved]
  - Cough [Recovered/Resolved]
  - Gastritis [Recovering/Resolving]
  - Overweight [Not Recovered/Not Resolved]

NARRATIVE: CASE EVENT DATE: 20180801
